FAERS Safety Report 11833130 (Version 1)
Quarter: 2015Q4

REPORT INFORMATION
  Report Type: Spontaneous
  Country: GB (occurrence: GB)
  Receive Date: 20151214
  Receipt Date: 20151214
  Transmission Date: 20160305
  Serious: Yes (Disabling)
  Sender: FDA-Public Use
  Company Number: GB-009507513-1512GBR007362

PATIENT
  Age: 87 Year
  Sex: Male
  Weight: 75 kg

DRUGS (11)
  1. METFORMIN HYDROCHLORIDE. [Concomitant]
     Active Substance: METFORMIN HYDROCHLORIDE
  2. BISOPROLOL [Concomitant]
     Active Substance: BISOPROLOL
  3. SITAGLIPTIN PHOSPHATE [Suspect]
     Active Substance: SITAGLIPTIN PHOSPHATE
     Indication: DIABETES MELLITUS
     Route: 048
     Dates: start: 20151015, end: 20151125
  4. ALLOPURINOL. [Concomitant]
     Active Substance: ALLOPURINOL
  5. FUROSEMIDE. [Concomitant]
     Active Substance: FUROSEMIDE
  6. CARBOCYSTEINE [Concomitant]
     Active Substance: CARBOCYSTEINE
  7. AMITRIPTYLINE HYDROCHLORIDE. [Concomitant]
     Active Substance: AMITRIPTYLINE HYDROCHLORIDE
  8. FOLIC ACID. [Concomitant]
     Active Substance: FOLIC ACID
  9. ASPIRIN. [Concomitant]
     Active Substance: ASPIRIN
  10. ATORVASTATIN [Concomitant]
     Active Substance: ATORVASTATIN
  11. LANSOPRAZOLE. [Concomitant]
     Active Substance: LANSOPRAZOLE

REACTIONS (4)
  - Myalgia [Recovered/Resolved]
  - Mobility decreased [Recovered/Resolved]
  - Nausea [Recovered/Resolved]
  - Asthenia [Recovered/Resolved]

NARRATIVE: CASE EVENT DATE: 20151125
